FAERS Safety Report 7709526-6 (Version None)
Quarter: 2011Q3

REPORT INFORMATION
  Report Type: 
  Country: None (occurrence: None)
  Receive Date: 20110825
  Receipt Date: 20110803
  Transmission Date: 20111222
  Serious: Yes (Life-Threatening, Hospitalization, Other)
  Sender: FDA-Public Use
  Company Number: FR-GILEAD-2008-0015930

PATIENT
  Sex: Male
  Weight: 58.7 kg

DRUGS (4)
  1. REYATAZ [Concomitant]
     Indication: HIV INFECTION
     Route: 048
     Dates: start: 20080221, end: 20080311
  2. NORVIR [Concomitant]
     Indication: HIV INFECTION
     Route: 048
     Dates: start: 20080221, end: 20080311
  3. TRUVADA [Suspect]
     Indication: HIV INFECTION
     Route: 048
     Dates: start: 20080221, end: 20080311
  4. FLUCONAZOLE [Concomitant]
     Route: 048
     Dates: start: 20080221, end: 20080306

REACTIONS (18)
  - PROTEINURIA [None]
  - HEPATIC STEATOSIS [None]
  - RENAL TUBULAR NECROSIS [None]
  - VOMITING [None]
  - ANURIA [None]
  - ASTHENIA [None]
  - LEUKOCYTURIA [None]
  - KIDNEY ENLARGEMENT [None]
  - HEPATOMEGALY [None]
  - COMPUTERISED TOMOGRAM ABNORMAL [None]
  - NEPHROLITHIASIS [None]
  - CLOSTRIDIUM DIFFICILE COLITIS [None]
  - GLYCOSURIA [None]
  - HAEMATURIA [None]
  - LIVER FUNCTION TEST ABNORMAL [None]
  - BLOOD SODIUM DECREASED [None]
  - RENAL FAILURE ACUTE [None]
  - RENAL TUBULAR DISORDER [None]
